FAERS Safety Report 9680842 (Version 1)
Quarter: 2013Q4

REPORT INFORMATION
  Report Type: Report from Study
  Country: IL (occurrence: IL)
  Receive Date: 20131111
  Receipt Date: 20131111
  Transmission Date: 20140711
  Serious: Yes (Hospitalization)
  Sender: FDA-Public Use
  Company Number: PHHY2013IL127699

PATIENT
  Age: 53 Year
  Sex: Female

DRUGS (2)
  1. SANDOSTATIN LAR [Suspect]
     Indication: ACROMEGALY
     Dosage: 30 MG, ONCE EVERY 4 WEEKS
     Dates: start: 20110113
  2. SANDOSTATIN LAR [Suspect]
     Dosage: 30 MG, ONCE EVERY 4 WEEKS
     Dates: start: 20131107

REACTIONS (1)
  - Blood calcium increased [Recovered/Resolved]
